FAERS Safety Report 5155048-9 (Version None)
Quarter: 2006Q4

REPORT INFORMATION
  Report Type: 
  Country: None (occurrence: None)
  Receive Date: 20061120
  Receipt Date: 20061120
  Transmission Date: 20070319
  Serious: Yes (Hospitalization)
  Sender: FDA-Public Use
  Company Number: None

PATIENT
  Age: 35 Year
  Sex: Female
  Weight: 155 kg

DRUGS (3)
  1. BACTRIM DS [Suspect]
     Indication: FOLLICULITIS
     Dosage: 1 DS TAB BID ORAL
     Route: 048
     Dates: start: 20061030, end: 20061107
  2. BACTRIM DS [Suspect]
     Indication: STAPHYLOCOCCAL INFECTION
     Dosage: 1 DS TAB BID ORAL
     Route: 048
     Dates: start: 20061030, end: 20061107
  3. AUGMENTIN '875' [Suspect]
     Indication: URINARY TRACT INFECTION
     Dosage: 875 G 1 TAB BID ORAL
     Route: 048
     Dates: start: 20061106, end: 20061107

REACTIONS (1)
  - STEVENS-JOHNSON SYNDROME [None]
